FAERS Safety Report 11420317 (Version 2)
Quarter: 2015Q3

REPORT INFORMATION
  Report Type: Spontaneous
  Country: US (occurrence: US)
  Receive Date: 20150826
  Receipt Date: 20150830
  Transmission Date: 20151125
  Serious: Yes (Hospitalization)
  Sender: FDA-Public Use
  Company Number: US-B.I. PHARMACEUTICALS,INC./RIDGEFIELD-2015-BI-45618BP

PATIENT
  Age: 34 Year
  Sex: Female
  Weight: 72 kg

DRUGS (1)
  1. COMBIVENT [Suspect]
     Active Substance: ALBUTEROL SULFATE\IPRATROPIUM BROMIDE
     Indication: ASTHMA
     Dosage: STRENGTH: 18MCG/103MCG; DAILY DOSE: 72MCCG/412MCG
     Route: 055
     Dates: start: 2010, end: 2013

REACTIONS (4)
  - Abdominal pain [Unknown]
  - Off label use [Unknown]
  - Vomiting [Unknown]
  - Borderline ovarian tumour [Recovered/Resolved]

NARRATIVE: CASE EVENT DATE: 2010
